FAERS Safety Report 4424494-0 (Version None)
Quarter: 2004Q3

REPORT INFORMATION
  Report Type: 
  Country: None (occurrence: None)
  Receive Date: 20040812
  Receipt Date: 20040811
  Transmission Date: 20050211
  Serious: Yes (Other)
  Sender: FDA-Public Use
  Company Number: FR-GLAXOSMITHKLINE-B0342190A

PATIENT

DRUGS (2)
  1. SALBUMOL [Suspect]
     Indication: PREMATURE LABOUR
     Dosage: 1MG SEE DOSAGE TEXT
     Dates: end: 20040804
  2. SPASFON [Concomitant]
     Indication: PREMATURE LABOUR

REACTIONS (3)
  - DRUG EXPOSURE DURING PREGNANCY [None]
  - SUPRAVENTRICULAR TACHYCARDIA [None]
  - TACHYCARDIA FOETAL [None]
